FAERS Safety Report 13705258 (Version 1)
Quarter: 2017Q2

REPORT INFORMATION
  Report Type: Spontaneous
  Country: None (occurrence: US)
  Receive Date: 20170629
  Receipt Date: 20170629
  Transmission Date: 20170830
  Serious: No
  Sender: FDA-Public Use
  Company Number: None

PATIENT
  Sex: Female

DRUGS (1)
  1. NOREPINEPHRINE 5MG AMNEAL PHARMACEUTICALS LLC [Suspect]
     Active Substance: NOREPINEPHRINE
     Route: 048
     Dates: start: 20170309

REACTIONS (1)
  - Tremor [None]
